FAERS Safety Report 5449668-1 (Version None)
Quarter: 2007Q3

REPORT INFORMATION
  Report Type: 
  Country: None (occurrence: None)
  Receive Date: 20070910
  Receipt Date: 20070830
  Transmission Date: 20080115
  Serious: Yes (Other)
  Sender: FDA-Public Use
  Company Number: 2007JP004094

PATIENT
  Age: 85 Year
  Sex: Female

DRUGS (1)
  1. VESICARE [Suspect]
     Indication: HYPERTONIC BLADDER
     Dosage: 5 MG, UNKNOWN/D, ORAL
     Route: 048

REACTIONS (2)
  - CONDITION AGGRAVATED [None]
  - DEMENTIA [None]
